FAERS Safety Report 8214116-5 (Version None)
Quarter: 2012Q1

REPORT INFORMATION
  Report Type: 
  Country: None (occurrence: None)
  Receive Date: 20120314
  Receipt Date: 20120314
  Transmission Date: 20120608
  Serious: Yes (Hospitalization)
  Sender: FDA-Public Use
  Company Number: None

PATIENT
  Age: 60 Year
  Sex: Male
  Weight: 90.3 kg

DRUGS (5)
  1. LEXAPRO [Concomitant]
  2. LITHIUM CARBONATE [Suspect]
     Indication: BIPOLAR DISORDER
     Dosage: 600MG DAILY PO CHRONIC
     Route: 048
  3. DEPAKOTE [Concomitant]
  4. ALBUTEROL [Concomitant]
  5. SYNTHROID [Concomitant]

REACTIONS (3)
  - GAIT DISTURBANCE [None]
  - ANTIDEPRESSANT DRUG LEVEL INCREASED [None]
  - DIPLOPIA [None]
